FAERS Safety Report 24313568 (Version 1)
Quarter: 2024Q3

REPORT INFORMATION
  Report Type: Spontaneous
  Country: US (occurrence: None)
  Receive Date: 20240911
  Receipt Date: 20240911
  Transmission Date: 20241017
  Serious: Yes (Life-Threatening, Disabling)
  Sender: Public
  Company Number: None

PATIENT
  Age: 71 Year
  Sex: Male
  Weight: 63 kg

DRUGS (3)
  1. GADAVIST [Suspect]
     Active Substance: GADOBUTROL
     Route: 042
  2. KEPPRA [Concomitant]
     Active Substance: LEVETIRACETAM
  3. VALIUM [Concomitant]
     Active Substance: DIAZEPAM

REACTIONS (10)
  - Fatigue [None]
  - Rash [None]
  - Brain fog [None]
  - Sneezing [None]
  - Visual impairment [None]
  - Arthralgia [None]
  - Weight decreased [None]
  - Dizziness [None]
  - Pruritus [None]
  - Contrast media reaction [None]

NARRATIVE: CASE EVENT DATE: 20231120
